FAERS Safety Report 9586076 (Version 1)
Quarter: 2013Q4

REPORT INFORMATION
  Report Type: Spontaneous
  Country: ES (occurrence: ES)
  Receive Date: 20131003
  Receipt Date: 20131003
  Transmission Date: 20140711
  Serious: Yes (Death)
  Sender: FDA-Public Use
  Company Number: ES-SA-2013SA095187

PATIENT
  Age: 88 Year
  Sex: Female

DRUGS (6)
  1. DAONIL [Suspect]
     Indication: PRODUCT USED FOR UNKNOWN INDICATION
     Dosage: 1-1-1
     Route: 065
     Dates: start: 20130701, end: 20130724
  2. SEGURIL [Suspect]
     Indication: PRODUCT USED FOR UNKNOWN INDICATION
     Route: 065
     Dates: start: 20130701
  3. LANTANON [Suspect]
     Indication: DEPRESSION
     Route: 048
     Dates: start: 20130701, end: 20130827
  4. METFORMINA [Concomitant]
     Dosage: 1-1-1
     Route: 065
     Dates: start: 2013
  5. ADIRO [Concomitant]
     Dosage: 0-1-0; TABLETS GASTRO EFG, 30 TABLETS
     Route: 065
     Dates: start: 2013
  6. ORFIDAL [Concomitant]
     Dosage: 1 A LAS 23 H;?25 TABLETS
     Route: 065
     Dates: start: 2013

REACTIONS (1)
  - Hyponatraemia [Fatal]
